FAERS Safety Report 7605309-6 (Version None)
Quarter: 2011Q3

REPORT INFORMATION
  Report Type: 
  Country: None (occurrence: None)
  Receive Date: 20110705
  Receipt Date: 20110616
  Transmission Date: 20111222
  Serious: Yes (Life-Threatening, Hospitalization)
  Sender: FDA-Public Use
  Company Number: LTI2011A00164

PATIENT
  Age: 93 Year
  Sex: Male

DRUGS (11)
  1. RILMENIDINE (RILMENIDINE) [Concomitant]
  2. CHIBRO-PROSCAR (FINASTERIDE) (FINASTERIDE) [Concomitant]
  3. DISCOTRINE (GLYCERYL TRINITRATE) [Concomitant]
  4. ISOPTIN [Concomitant]
  5. GLUCOVANCE [Concomitant]
  6. FUROSEMIDE [Concomitant]
  7. MEDIATENSYL (URAPIDIL) [Concomitant]
  8. LECTIL (BETAHISTINE HYDROCHLORIDE) [Concomitant]
  9. ACTOS [Suspect]
     Indication: TYPE 2 DIABETES MELLITUS
     Dosage: 30 MG (30 MG,1 IN 1 D) ORAL
     Route: 048
     Dates: start: 20070301
  10. APROVEL (IRBESARTAN) [Concomitant]
  11. ACETAMINOPHEN [Concomitant]

REACTIONS (1)
  - BLADDER TRANSITIONAL CELL CARCINOMA [None]
